FAERS Safety Report 7572995-9 (Version None)
Quarter: 2011Q2

REPORT INFORMATION
  Report Type: 
  Country: None (occurrence: None)
  Receive Date: 20110627
  Receipt Date: 20110620
  Transmission Date: 20111010
  Serious: Yes (Hospitalization, Other)
  Sender: FDA-Public Use
  Company Number: US-JNJFOC-20110412187

PATIENT
  Sex: Male
  Weight: 121.56 kg

DRUGS (2)
  1. DURAGESIC-100 [Suspect]
     Indication: BACK PAIN
     Route: 062
     Dates: start: 20030101, end: 20110301
  2. FENTANYL-100 [Suspect]
     Indication: BACK PAIN
     Route: 062
     Dates: start: 20110301

REACTIONS (4)
  - ABDOMINAL OPERATION [None]
  - PAIN [None]
  - AORTIC VALVE DISEASE [None]
  - GALLBLADDER PERFORATION [None]
